FAERS Safety Report 13328776 (Version 1)
Quarter: 2017Q1

REPORT INFORMATION
  Report Type: Spontaneous
  Country: CA (occurrence: CA)
  Receive Date: 20170313
  Receipt Date: 20170313
  Transmission Date: 20170428
  Serious: Yes (Disabling, Other)
  Sender: FDA-Public Use
  Company Number: CA-TEVA-747769ACC

PATIENT
  Age: 4 Year
  Sex: Male
  Weight: 23 kg

DRUGS (26)
  1. VINCRISTINE SULFATE INJECTION USP [Suspect]
     Active Substance: VINCRISTINE SULFATE
     Indication: ACUTE LYMPHOCYTIC LEUKAEMIA
     Route: 042
  2. AMITRIPTYLINE [Concomitant]
     Active Substance: AMITRIPTYLINE
  3. AMOXICILLIN/CLAVULANIC ACID [Concomitant]
     Active Substance: AMOXICILLIN\CLAVULANIC ACID
  4. CIPROFLOXACIN. [Concomitant]
     Active Substance: CIPROFLOXACIN
  5. DIMENHYDRINATE. [Concomitant]
     Active Substance: DIMENHYDRINATE
  6. HYDROCORTISONE. [Concomitant]
     Active Substance: HYDROCORTISONE
  7. L-ASPARAGINASE [Concomitant]
     Active Substance: ASPARAGINASE
  8. METHOTREXATE. [Concomitant]
     Active Substance: METHOTREXATE
  9. METHYLPREDNISOLONE NOS [Concomitant]
     Active Substance: METHYLPREDNISOLONE
  10. ONDANSETRON [Concomitant]
     Active Substance: ONDANSETRON
  11. POLYETHYLENE GLYCOL [Concomitant]
     Active Substance: POLYETHYLENE GLYCOLS
  12. FAMCICLOVIR. [Concomitant]
     Active Substance: FAMCICLOVIR
  13. ACETAMINOPHEN. [Concomitant]
     Active Substance: ACETAMINOPHEN
  14. NYSTATIN. [Concomitant]
     Active Substance: NYSTATIN
  15. RANITIDINE. [Concomitant]
     Active Substance: RANITIDINE
  16. TOBRAMYCIN INJECTION USP [Concomitant]
  17. CYTARABINE INJECTION [Concomitant]
     Active Substance: CYTARABINE
  18. MERCAPTOPURINE. [Concomitant]
     Active Substance: MERCAPTOPURINE
  19. CIPROFLOXACIN. [Concomitant]
     Active Substance: CIPROFLOXACIN
  20. DEXAMETHASONE. [Concomitant]
     Active Substance: DEXAMETHASONE
  21. PENTAMIDINE ISETHIONATE INJ 300MG/VIAL BP [Concomitant]
  22. PIPERACILLIN/TAZOBACTAM [Concomitant]
     Active Substance: PIPERACILLIN SODIUM\TAZOBACTAM SODIUM
  23. PREDNISOLONE. [Concomitant]
     Active Substance: PREDNISOLONE
  24. DOXORUBICIN HYDROCHLORIDE INJECTION [Concomitant]
     Active Substance: DOXORUBICIN HYDROCHLORIDE
  25. SULFAMETHOXAZOLE\TRIMETHOPRIM [Concomitant]
     Active Substance: SULFAMETHOXAZOLE\TRIMETHOPRIM
  26. VANCOMYCIN [Concomitant]
     Active Substance: VANCOMYCIN

REACTIONS (7)
  - Musculoskeletal stiffness [Unknown]
  - Paraesthesia [Unknown]
  - Immobile [Unknown]
  - Neuropathy peripheral [Unknown]
  - Pain [Unknown]
  - Tremor [Unknown]
  - Pain in extremity [Unknown]
